FAERS Safety Report 8929197 (Version 2)
Quarter: 2013Q1

REPORT INFORMATION
  Report Type: Spontaneous
  Country: US (occurrence: None)
  Receive Date: 20121119
  Receipt Date: 20130122
  Transmission Date: 20140127
  Serious: Yes (Other)
  Sender: FDA-Public Use
  Company Number: DSA_60853_2012

PATIENT
  Age: 86 Year
  Sex: Male

DRUGS (4)
  1. CARDIZEM CD [Suspect]
     Indication: PRODUCT USED FOR UNKNOWN INDICATION
  2. WARFARIN [Concomitant]
  3. OROXINE [Concomitant]
  4. LASIX [Concomitant]

REACTIONS (2)
  - Dementia Alzheimer^s type [None]
  - Pneumonia [None]
